FAERS Safety Report 6157167-7 (Version None)
Quarter: 2009Q2

REPORT INFORMATION
  Report Type: 
  Country: None (occurrence: None)
  Receive Date: 20090416
  Receipt Date: 20090410
  Transmission Date: 20091009
  Serious: No
  Sender: FDA-Public Use
  Company Number: US-B.I. PHARMACEUTICALS,INC./RIDGEFIELD-2009-BP-04505BP

PATIENT
  Age: 84 Year
  Sex: Male

DRUGS (3)
  1. FLOMAX [Suspect]
     Indication: URINARY INCONTINENCE
  2. VESICARE [Suspect]
     Indication: URINARY INCONTINENCE
  3. ENABLEX [Suspect]
     Indication: URINARY INCONTINENCE

REACTIONS (1)
  - CONSTIPATION [None]
